FAERS Safety Report 13055130 (Version 3)
Quarter: 2017Q1

REPORT INFORMATION
  Report Type: Spontaneous
  Country: US (occurrence: US)
  Receive Date: 20161222
  Receipt Date: 20170203
  Transmission Date: 20170428
  Serious: Yes (Other)
  Sender: FDA-Public Use
  Company Number: US-PFIZER INC-2016580972

PATIENT
  Age: 76 Year
  Sex: Male

DRUGS (2)
  1. NEXIUM [Concomitant]
     Active Substance: ESOMEPRAZOLE MAGNESIUM
     Indication: NAUSEA
     Dosage: UNK
  2. SUTENT [Suspect]
     Active Substance: SUNITINIB MALATE
     Indication: RENAL CELL CARCINOMA
     Dosage: 50 MG, CYCLIC (DAILY FOR 28 DAYS)
     Dates: start: 201606

REACTIONS (11)
  - Decreased appetite [Unknown]
  - Lower respiratory tract infection [Recovered/Resolved]
  - Oral pain [Unknown]
  - Nasopharyngitis [Recovered/Resolved]
  - White blood cell count decreased [Unknown]
  - Skin fissures [Unknown]
  - Bronchitis [Unknown]
  - Hypogeusia [Unknown]
  - Pain in extremity [Unknown]
  - Nausea [Unknown]
  - Asthenia [Unknown]

NARRATIVE: CASE EVENT DATE: 20161201
